FAERS Safety Report 5542448-8 (Version None)
Quarter: 2007Q4

REPORT INFORMATION
  Report Type: 
  Country: None (occurrence: None)
  Receive Date: 20071129
  Receipt Date: 20070529
  Transmission Date: 20080405
  Serious: Yes (Other)
  Sender: FDA-Public Use
  Company Number: US200703004581

PATIENT
  Age: 46 Year
  Sex: Female
  Weight: 108.8 kg

DRUGS (5)
  1. ZYPREXA [Suspect]
     Dosage: 5 MG , 10 MG
     Dates: start: 19990101, end: 20050101
  2. SEROQUEL [Concomitant]
  3. REMERON [Concomitant]
  4. ZOLOFT [Concomitant]
  5. EFFEXOR [Concomitant]

REACTIONS (6)
  - DIABETES MELLITUS [None]
  - DIABETIC COMA [None]
  - DIABETIC KETOACIDOSIS [None]
  - HYPERGLYCAEMIA [None]
  - HYPERTENSION [None]
  - PANCREATITIS [None]
